FAERS Safety Report 6516530-2 (Version None)
Quarter: 2009Q4

REPORT INFORMATION
  Report Type: 
  Country: None (occurrence: None)
  Receive Date: 20091223
  Receipt Date: 20091215
  Transmission Date: 20100525
  Serious: Yes (Hospitalization)
  Sender: FDA-Public Use
  Company Number: US-JNJFOC-20091101965

PATIENT
  Sex: Female
  Weight: 59.88 kg

DRUGS (3)
  1. REMICADE [Suspect]
     Route: 042
  2. REMICADE [Suspect]
     Indication: CROHN'S DISEASE
     Route: 042
  3. PREMEDICATION [Concomitant]

REACTIONS (3)
  - ABASIA [None]
  - INFUSION RELATED REACTION [None]
  - WEIGHT BEARING DIFFICULTY [None]
